FAERS Safety Report 9818773 (Version 2)
Quarter: 2014Q1

REPORT INFORMATION
  Report Type: Report from Study
  Country: US (occurrence: US)
  Receive Date: 20140115
  Receipt Date: 20140123
  Transmission Date: 20141002
  Serious: Yes (Hospitalization)
  Sender: FDA-Public Use
  Company Number: US-EISAI INC-E7389-04619-CLI-US

PATIENT
  Age: 74 Year
  Sex: Female

DRUGS (1)
  1. HALAVEN [Suspect]
     Indication: CERVIX CARCINOMA
     Route: 041
     Dates: start: 20130507

REACTIONS (6)
  - Febrile neutropenia [Recovered/Resolved]
  - Anaemia [Recovering/Resolving]
  - Upper respiratory tract infection [Recovered/Resolved]
  - Urinary tract infection [Recovered/Resolved]
  - Rectal haemorrhage [Recovered/Resolved]
  - Atelectasis [Not Recovered/Not Resolved]
